FAERS Safety Report 9420201 (Version 1)
Quarter: 2013Q3

REPORT INFORMATION
  Report Type: Spontaneous
  Country: US (occurrence: None)
  Receive Date: 20130723
  Receipt Date: 20130723
  Transmission Date: 20140515
  Serious: Yes (Hospitalization)
  Sender: FDA-Public Use
  Company Number: None

PATIENT
  Age: 69 Year
  Sex: Male
  Weight: 88.6 kg

DRUGS (1)
  1. CISPLATIN [Suspect]

REACTIONS (4)
  - Gastritis [None]
  - Diverticulum [None]
  - Haemoglobin decreased [None]
  - Melaena [None]
